FAERS Safety Report 16400368 (Version 1)
Quarter: 2019Q2

REPORT INFORMATION
  Report Type: Spontaneous
  Country: FR (occurrence: FR)
  Receive Date: 20190606
  Receipt Date: 20190606
  Transmission Date: 20190711
  Serious: Yes (Hospitalization)
  Sender: FDA-Public Use
  Company Number: FR-NAPPMUNDI-GBR-2019-0067004

PATIENT
  Age: 25 Year
  Sex: Male

DRUGS (4)
  1. MORPHINE SULFATE. [Concomitant]
     Active Substance: MORPHINE SULFATE
  2. PERFALGAN [Concomitant]
     Active Substance: ACETAMINOPHEN
  3. INIPOMP [Concomitant]
     Active Substance: PANTOPRAZOLE SODIUM
  4. OXYNORM [Suspect]
     Active Substance: OXYCODONE HYDROCHLORIDE
     Indication: SCIATICA
     Dosage: 14 MG, TOTAL (STRENGTH 10MG/ML)
     Route: 042
     Dates: start: 20190404, end: 20190404

REACTIONS (3)
  - Somnolence [Recovered/Resolved]
  - Product preparation error [Recovered/Resolved]
  - Hypokinesia [Recovered/Resolved]

NARRATIVE: CASE EVENT DATE: 20190404
